FAERS Safety Report 5366842-3 (Version None)
Quarter: 2007Q2

REPORT INFORMATION
  Report Type: 
  Country: None (occurrence: None)
  Receive Date: 20070622
  Receipt Date: 20061215
  Transmission Date: 20071010
  Serious: No
  Sender: FDA-Public Use
  Company Number: US-ASTRAZENECA-2006UW24398

PATIENT

DRUGS (1)
  1. RHINOCORT [Suspect]
     Route: 045
     Dates: start: 20060301

REACTIONS (4)
  - ANOSMIA [None]
  - RHINORRHOEA [None]
  - SWELLING [None]
  - VISUAL DISTURBANCE [None]
